FAERS Safety Report 6834514-1 (Version None)
Quarter: 2010Q3

REPORT INFORMATION
  Report Type: 
  Country: None (occurrence: None)
  Receive Date: 20100712
  Receipt Date: 20070424
  Transmission Date: 20110219
  Serious: No
  Sender: FDA-Public Use
  Company Number: US-PFIZER INC-2007034606

PATIENT
  Sex: Female

DRUGS (13)
  1. CHANTIX [Suspect]
     Indication: SMOKING CESSATION THERAPY
     Dates: start: 20070219
  2. PLAVIX [Concomitant]
  3. ADVAIR DISKUS 100/50 [Concomitant]
  4. OTHER RESPIRATORY SYSTEM PRODUCTS [Concomitant]
  5. SPIRIVA [Concomitant]
  6. POTASSIUM [Concomitant]
  7. LASIX [Concomitant]
  8. LEXAPRO [Concomitant]
  9. LIPITOR [Concomitant]
  10. ACTOS [Concomitant]
  11. GLIPIZIDE [Concomitant]
  12. THEOPHYLLINE [Concomitant]
  13. ACETYLSALICYLIC ACID [Concomitant]

REACTIONS (11)
  - ABDOMINAL DISTENSION [None]
  - BRONCHITIS [None]
  - EYE PAIN [None]
  - EYE SWELLING [None]
  - HYPERSENSITIVITY [None]
  - NASOPHARYNGITIS [None]
  - OCULAR HYPERAEMIA [None]
  - SINUSITIS [None]
  - VISION BLURRED [None]
  - VISUAL IMPAIRMENT [None]
  - WEIGHT INCREASED [None]
